FAERS Safety Report 9384514 (Version 1)
Quarter: 2013Q2

REPORT INFORMATION
  Report Type: Spontaneous
  Country: HR (occurrence: None)
  Receive Date: 20130628
  Receipt Date: 20130628
  Transmission Date: 20140414
  Serious: Yes (Hospitalization)
  Sender: FDA-Public Use
  Company Number: 7219692

PATIENT
  Age: 77 Year
  Sex: Male

DRUGS (5)
  1. EUTHYROX [Suspect]
     Dosage: 100 MCG (100 MCG, 1 IN 1 D), ORAL
     Route: 048
  2. OMNIC [Suspect]
     Indication: BENIGN PROSTATIC HYPERPLASIA
     Dosage: 0.4 MG (0.4 MG, 1 IN 1 D), ORAL
     Route: 048
     Dates: start: 201210
  3. LERCANIDIPINE HYDROCHLORIDE (LERCANIDIPINE HYDROCHLORIDE) (COATED TABLET) (LERCANIDIPINE HYDROCHLORIDE) [Concomitant]
  4. CONCRO COR (BISOPROLOL FUMARATE) (COATED TABLET) (BISOPROLOL FUMARATE) [Concomitant]
  5. CONDARONE /00133102/ (AMIODARONE HYDROCHLORIDE) (TABLET) (AMIDARONE HYDROCLORIDE) [Concomitant]

REACTIONS (1)
  - Constipation [None]
